FAERS Safety Report 7949814-1 (Version None)
Quarter: 2011Q4

REPORT INFORMATION
  Report Type: 
  Country: None (occurrence: None)
  Receive Date: 20111130
  Receipt Date: 20111123
  Transmission Date: 20120403
  Serious: Yes (Other)
  Sender: FDA-Public Use
  Company Number: BR-MERCK-1111BRA00090

PATIENT
  Sex: Male

DRUGS (8)
  1. TRUSOPT [Suspect]
     Route: 065
     Dates: start: 19910101
  2. LATANOPROST [Concomitant]
     Route: 065
     Dates: start: 20010101
  3. BETAXOLOL HYDROCHLORIDE [Concomitant]
     Route: 065
     Dates: start: 19910101
  4. TRUSOPT [Suspect]
     Route: 065
     Dates: start: 19910101
  5. TIMOPTIC [Suspect]
     Indication: DEVELOPMENTAL GLAUCOMA
     Route: 065
     Dates: end: 19910101
  6. LATANOPROST [Concomitant]
     Route: 065
     Dates: start: 19910101
  7. TRUSOPT [Suspect]
     Indication: DEVELOPMENTAL GLAUCOMA
     Route: 065
     Dates: start: 19910101
  8. BETAXOLOL HYDROCHLORIDE [Concomitant]
     Route: 065
     Dates: start: 19910101

REACTIONS (2)
  - BLINDNESS UNILATERAL [None]
  - INTRAOCULAR PRESSURE FLUCTUATION [None]
